FAERS Safety Report 6124665-1 (Version None)
Quarter: 2009Q1

REPORT INFORMATION
  Report Type: 
  Country: None (occurrence: None)
  Receive Date: 20090319
  Receipt Date: 20090309
  Transmission Date: 20090719
  Serious: Yes (Other)
  Sender: FDA-Public Use
  Company Number: US-PFIZER INC-2008157144

PATIENT
  Sex: Male
  Weight: 93 kg

DRUGS (5)
  1. SUTENT [Suspect]
     Dosage: 50 MG, 1X/DAY
     Route: 048
     Dates: start: 20080501
  2. PROSCAR [Concomitant]
     Indication: PROSTATOMEGALY
     Dosage: UNK
  3. LOVASTATIN [Concomitant]
     Indication: BLOOD CHOLESTEROL INCREASED
     Dosage: 165 MG, 1X/DAY
  4. UBIDECARENONE [Concomitant]
     Dosage: UNK
  5. FLEXERIL [Concomitant]
     Dosage: UNK

REACTIONS (3)
  - BLOOD PRESSURE DECREASED [None]
  - DIARRHOEA [None]
  - PARATHYROID TUMOUR BENIGN [None]
